FAERS Safety Report 7584310-5 (Version None)
Quarter: 2011Q2

REPORT INFORMATION
  Report Type: 
  Country: None (occurrence: None)
  Receive Date: 20110630
  Receipt Date: 20110627
  Transmission Date: 20111010
  Serious: Yes (Other)
  Sender: FDA-Public Use
  Company Number: HU-PFIZER INC-2011143726

PATIENT
  Age: 60 Year
  Sex: Female
  Weight: 85 kg

DRUGS (3)
  1. EUTIROX [Concomitant]
     Dosage: UNK
     Dates: start: 20000101
  2. ATORVASTATIN CALCIUM [Suspect]
     Indication: BLOOD CHOLESTEROL INCREASED
     Dosage: 20 MG, 1X/DAY
     Dates: start: 20100101, end: 20100101
  3. ATORVASTATIN CALCIUM [Suspect]
     Dosage: UNK

REACTIONS (3)
  - ABDOMINAL PAIN [None]
  - HEPATIC PAIN [None]
  - BILIARY COLIC [None]
